FAERS Safety Report 16563391 (Version 1)
Quarter: 2019Q3

REPORT INFORMATION
  Report Type: Spontaneous
  Country: US (occurrence: US)
  Receive Date: 20190712
  Receipt Date: 20190712
  Transmission Date: 20191004
  Serious: No
  Sender: FDA-Public Use
  Company Number: US-JNJFOC-20190704052

PATIENT

DRUGS (2)
  1. TYLENOL [Suspect]
     Active Substance: ACETAMINOPHEN
     Indication: UPPER LIMB FRACTURE
     Dosage: EVERY 3 OR 4 HOURS AS NEEDED
     Route: 048
  2. ALEVE [Concomitant]
     Active Substance: NAPROXEN SODIUM
     Indication: PRODUCT USED FOR UNKNOWN INDICATION
     Dosage: 1 PILL EVERY 10 HOURS
     Route: 065

REACTIONS (2)
  - Inappropriate schedule of product administration [Unknown]
  - Frequent bowel movements [Unknown]
